FAERS Safety Report 6870115-7 (Version None)
Quarter: 2010Q3

REPORT INFORMATION
  Report Type: 
  Country: None (occurrence: None)
  Receive Date: 20100722
  Receipt Date: 20100713
  Transmission Date: 20110219
  Serious: Yes (Hospitalization)
  Sender: FDA-Public Use
  Company Number: GB-PFIZER INC-2010087432

PATIENT
  Age: 67 Year
  Sex: Female

DRUGS (2)
  1. DOXYCYCLINE HYCLATE [Suspect]
     Indication: COUGH
     Dosage: 100 MG, UNK
     Route: 048
     Dates: start: 20100329, end: 20100404
  2. AMOXICILLIN [Concomitant]
     Route: 048

REACTIONS (13)
  - CONFUSIONAL STATE [None]
  - DISCOMFORT [None]
  - DYSPEPSIA [None]
  - DYSPNOEA [None]
  - HEADACHE [None]
  - HYPERSENSITIVITY [None]
  - MALAISE [None]
  - NAUSEA [None]
  - OEDEMA PERIPHERAL [None]
  - PAIN [None]
  - PAIN IN EXTREMITY [None]
  - POLYARTHRITIS [None]
  - TENDERNESS [None]
